FAERS Safety Report 13316419 (Version 1)
Quarter: 2017Q1

REPORT INFORMATION
  Report Type: Spontaneous
  Country: US (occurrence: US)
  Receive Date: 20170310
  Receipt Date: 20170310
  Transmission Date: 20170428
  Serious: No
  Sender: FDA-Public Use
  Company Number: US-AUROBINDO-AUR-APU-2016-14012

PATIENT
  Age: 58 Year
  Sex: Male
  Weight: 75.29 kg

DRUGS (2)
  1. LEVETIRACETAM TABLETS 500 MG [Suspect]
     Active Substance: LEVETIRACETAM
     Indication: MIGRAINE
     Dosage: 500 MG, TWO TIMES A DAY
     Route: 065
     Dates: start: 201609, end: 20160930
  2. LEVETIRACETAM TABLETS 500 MG [Suspect]
     Active Substance: LEVETIRACETAM
     Indication: TENSION
     Dosage: 250 MG, TWO TIMES A DAY
     Route: 065
     Dates: start: 20160921, end: 201609

REACTIONS (2)
  - Arthralgia [Not Recovered/Not Resolved]
  - Drug ineffective for unapproved indication [Unknown]

NARRATIVE: CASE EVENT DATE: 20160921
